FAERS Safety Report 21166885 (Version 2)
Quarter: 2023Q1

REPORT INFORMATION
  Report Type: Spontaneous
  Country: US (occurrence: US)
  Receive Date: 20220803
  Receipt Date: 20230130
  Transmission Date: 20230417
  Serious: No
  Sender: FDA-Public Use
  Company Number: US-SAREPTA THERAPEUTICS INC.-SRP2022-002271

PATIENT
  Age: 26 Year
  Sex: Male
  Weight: 62.132 kg

DRUGS (7)
  1. AMONDYS 45 [Suspect]
     Active Substance: CASIMERSEN
     Indication: Duchenne muscular dystrophy
     Dosage: 1800 MILLIGRAM, WEEKLY
     Route: 042
     Dates: start: 20220128, end: 20220318
  2. AMONDYS 45 [Suspect]
     Active Substance: CASIMERSEN
     Dosage: 1700 MILLIGRAM, WEEKLY
     Route: 042
     Dates: start: 20220607
  3. UROXATRAL [Concomitant]
     Active Substance: ALFUZOSIN HYDROCHLORIDE
     Indication: Calculus urinary
     Dosage: 10 MILLIGRAM, QD
     Route: 048
     Dates: start: 20220216
  4. CARVEDILOL [Concomitant]
     Active Substance: CARVEDILOL
     Indication: Cardiomyopathy
     Dosage: 12.5 MILLIGRAM, BID
     Route: 048
  5. DIGOXIN [Concomitant]
     Active Substance: DIGOXIN
     Indication: Cardiomyopathy
     Dosage: 0.125 MILLIGRAM, QD
     Route: 048
     Dates: start: 20210525
  6. LISINOPRIL [Concomitant]
     Active Substance: LISINOPRIL
     Indication: Cardiac failure
     Dosage: 1.25 MILLIGRAM, QD
     Route: 048
     Dates: start: 20220405
  7. ALBUTEROL SULFATE [Concomitant]
     Active Substance: ALBUTEROL SULFATE
     Indication: Product used for unknown indication
     Dosage: 2 PUFFS EVERY 4 HOURS, PRN

REACTIONS (4)
  - Weight decreased [Not Recovered/Not Resolved]
  - Abdominal pain [Recovering/Resolving]
  - Decreased appetite [Recovering/Resolving]
  - Overdose [Unknown]

NARRATIVE: CASE EVENT DATE: 20211105
